FAERS Safety Report 9255484 (Version 2)
Quarter: 2013Q2

REPORT INFORMATION
  Report Type: Spontaneous
  Country: SV (occurrence: None)
  Receive Date: 20130418
  Receipt Date: 20130425
  Transmission Date: 20140414
  Serious: Yes (Other)
  Sender: FDA-Public Use
  Company Number: SK-011421

PATIENT
  Age: 10 Year
  Sex: Female
  Weight: 22 kg

DRUGS (2)
  1. ZOMACTON [Suspect]
     Indication: GROWTH HORMONE DEFICIENCY
     Route: 058
     Dates: start: 20030310, end: 20130108
  2. HC HYDROCORTISON [Concomitant]

REACTIONS (6)
  - Hepatitis [None]
  - Hepatic cancer [None]
  - Hepatoblastoma [None]
  - Back pain [None]
  - Pain in extremity [None]
  - Osteoporosis [None]
